FAERS Safety Report 16895610 (Version 1)
Quarter: 2019Q4

REPORT INFORMATION
  Report Type: Spontaneous
  Country: US (occurrence: US)
  Receive Date: 20191007
  Receipt Date: 20191007
  Transmission Date: 20200122
  Serious: Yes (Other)
  Sender: FDA-Public Use
  Company Number: None

PATIENT
  Age: 36 Year
  Sex: Male
  Weight: 85.5 kg

DRUGS (3)
  1. MIRTAZAPINE. [Concomitant]
     Active Substance: MIRTAZAPINE
     Dates: start: 20190807
  2. GUANFACINE. [Concomitant]
     Active Substance: GUANFACINE
     Dates: start: 20190827
  3. LAMOTRIGINE. [Suspect]
     Active Substance: LAMOTRIGINE
     Indication: BIPOLAR II DISORDER
     Route: 048
     Dates: start: 20191004, end: 20191005

REACTIONS (8)
  - Vertigo [None]
  - Nightmare [None]
  - Abnormal dreams [None]
  - Urinary incontinence [None]
  - Lethargy [None]
  - Somnolence [None]
  - Fatigue [None]
  - Nausea [None]

NARRATIVE: CASE EVENT DATE: 20191004
